FAERS Safety Report 17951044 (Version 2)
Quarter: 2020Q3

REPORT INFORMATION
  Report Type: Report from Study
  Country: None (occurrence: GB)
  Receive Date: 20200626
  Receipt Date: 20200722
  Transmission Date: 20201103
  Serious: Yes (Other)
  Sender: FDA-Public Use
  Company Number: GB-ABBVIE-20K-167-3456464-00

PATIENT
  Age: 78 Year
  Sex: Male

DRUGS (2)
  1. HUMIRA [Suspect]
     Active Substance: ADALIMUMAB
     Indication: CROHN^S DISEASE
     Route: 058
  2. HUMIRA [Suspect]
     Active Substance: ADALIMUMAB
     Route: 058

REACTIONS (13)
  - Neck injury [Unknown]
  - Renal failure [Unknown]
  - Intentional product misuse [Unknown]
  - Abdominal pain upper [Unknown]
  - Tooth loss [Unknown]
  - Lacrimation increased [Unknown]
  - Urinary tract infection [Unknown]
  - Pain in extremity [Unknown]
  - Ocular discomfort [Unknown]
  - Oxygen saturation decreased [Unknown]
  - Drooling [Unknown]
  - Abdominal distension [Unknown]
  - Neck mass [Unknown]

NARRATIVE: CASE EVENT DATE: 202007
